FAERS Safety Report 8735650 (Version 2)
Quarter: 2013Q4

REPORT INFORMATION
  Report Type: Spontaneous
  Country: US (occurrence: US)
  Receive Date: 20120822
  Receipt Date: 20131106
  Transmission Date: 20140711
  Serious: Yes (Other)
  Sender: FDA-Public Use
  Company Number: US-009507513-1207USA010509

PATIENT
  Age: 66 Year
  Sex: Male

DRUGS (2)
  1. ZOCOR [Suspect]
  2. NIASPAN [Suspect]

REACTIONS (3)
  - Severe acute respiratory syndrome [Unknown]
  - Convulsion [Unknown]
  - Pneumonia [Unknown]
